FAERS Safety Report 6438267-0 (Version None)
Quarter: 2009Q4

REPORT INFORMATION
  Report Type: 
  Country: None (occurrence: None)
  Receive Date: 20091112
  Receipt Date: 20091102
  Transmission Date: 20100525
  Serious: Yes (Other)
  Sender: FDA-Public Use
  Company Number: PHHY2009DE36048

PATIENT
  Sex: Female

DRUGS (2)
  1. RASILEZ [Suspect]
  2. THYROID HORMONES [Concomitant]

REACTIONS (3)
  - ARRHYTHMIA [None]
  - DIZZINESS [None]
  - EXTRASYSTOLES [None]
